FAERS Safety Report 15942168 (Version 2)
Quarter: 2019Q1

REPORT INFORMATION
  Report Type: Spontaneous
  Country: US (occurrence: US)
  Receive Date: 20190209
  Receipt Date: 20190211
  Transmission Date: 20190417
  Serious: Yes (Hospitalization)
  Sender: FDA-Public Use
  Company Number: US-ZYDUS-033420

PATIENT
  Age: 20 Year
  Sex: Female

DRUGS (9)
  1. LORAZEPAM. [Concomitant]
     Active Substance: LORAZEPAM
     Indication: NEUROPSYCHIATRIC SYMPTOMS
     Route: 042
  2. LORAZEPAM. [Concomitant]
     Active Substance: LORAZEPAM
     Indication: NEUROPSYCHIATRIC SYMPTOMS
     Dosage: TITRATED UP TO 20 MG DAILY
     Route: 065
  3. PREDNISONE. [Concomitant]
     Active Substance: PREDNISONE
     Indication: PRODUCT USED FOR UNKNOWN INDICATION
     Route: 065
  4. HALOPERIDOL. [Suspect]
     Active Substance: HALOPERIDOL
     Indication: NEUROPSYCHIATRIC SYMPTOMS
     Route: 065
  5. OLANZAPINE. [Suspect]
     Active Substance: OLANZAPINE
     Indication: NEUROPSYCHIATRIC SYMPTOMS
     Route: 065
  6. PREDNISONE. [Concomitant]
     Active Substance: PREDNISONE
     Indication: PRODUCT USED FOR UNKNOWN INDICATION
     Route: 065
  7. LORAZEPAM. [Concomitant]
     Active Substance: LORAZEPAM
     Indication: NEUROPSYCHIATRIC SYMPTOMS
     Route: 065
  8. LORAZEPAM. [Concomitant]
     Active Substance: LORAZEPAM
     Indication: NEUROPSYCHIATRIC SYMPTOMS
     Route: 048
  9. LORAZEPAM. [Concomitant]
     Active Substance: LORAZEPAM
     Indication: NEUROPSYCHIATRIC SYMPTOMS
     Route: 065

REACTIONS (6)
  - Catatonia [Recovered/Resolved]
  - Posturing [Recovered/Resolved]
  - Perseveration [Recovered/Resolved]
  - Echopraxia [Recovered/Resolved]
  - Staring [Recovered/Resolved]
  - Waxy flexibility [Recovered/Resolved]
